FAERS Safety Report 16380118 (Version 1)
Quarter: 2019Q2

REPORT INFORMATION
  Report Type: Report from Study
  Country: US (occurrence: US)
  Receive Date: 20190601
  Receipt Date: 20190601
  Transmission Date: 20190711
  Serious: Yes (Hospitalization, Other)
  Sender: FDA-Public Use
  Company Number: US-BAUSCH-BL-2019-015803

PATIENT
  Sex: Male

DRUGS (2)
  1. XIFAXAN [Suspect]
     Active Substance: RIFAXIMIN
     Indication: PRODUCT USED FOR UNKNOWN INDICATION
     Route: 065
  2. XIFAXAN [Suspect]
     Active Substance: RIFAXIMIN
     Route: 065
     Dates: start: 2019

REACTIONS (19)
  - Cardiac failure congestive [Unknown]
  - Hypotension [Unknown]
  - Fall [Unknown]
  - Upper limb fracture [Unknown]
  - Wrist fracture [Unknown]
  - Ammonia increased [Unknown]
  - Diabetic foot [Unknown]
  - Diabetes mellitus [Unknown]
  - Device dislocation [Unknown]
  - Sleep deficit [Unknown]
  - Limb injury [Unknown]
  - Hepatic cirrhosis [Unknown]
  - Splenomegaly [Unknown]
  - Loss of personal independence in daily activities [Unknown]
  - Inability to afford medication [Unknown]
  - Disorientation [Unknown]
  - Chronic kidney disease [Unknown]
  - Pain [Unknown]
  - Therapy cessation [Unknown]

NARRATIVE: CASE EVENT DATE: 2019
